FAERS Safety Report 7486319-9 (Version None)
Quarter: 2011Q2

REPORT INFORMATION
  Report Type: 
  Country: None (occurrence: None)
  Receive Date: 20110517
  Receipt Date: 20110506
  Transmission Date: 20111010
  Serious: Yes (Hospitalization)
  Sender: FDA-Public Use
  Company Number: GR-JNJFOC-20100704823

PATIENT
  Sex: Male
  Weight: 105 kg

DRUGS (2)
  1. METHOTREXATE [Suspect]
     Indication: PSORIASIS
  2. STELARA [Suspect]
     Indication: PSORIASIS
     Route: 058
     Dates: start: 20100625

REACTIONS (1)
  - HEPATITIS B [None]
